FAERS Safety Report 19158182 (Version 2)
Quarter: 2021Q2

REPORT INFORMATION
  Report Type: Spontaneous
  Country: AU (occurrence: AU)
  Receive Date: 20210420
  Receipt Date: 20210503
  Transmission Date: 20210717
  Serious: Yes (Life-Threatening, Hospitalization, Other)
  Sender: FDA-Public Use
  Company Number: AU-PFIZER INC-2021390672

PATIENT
  Age: 43 Year
  Sex: Female

DRUGS (17)
  1. NOREPINEPHRINE BITARTRATE. [Suspect]
     Active Substance: NOREPINEPHRINE BITARTRATE
     Dosage: 0.2?0.3 UG/KG/MIN
  2. PREDNISOLONE. [Concomitant]
     Active Substance: PREDNISOLONE
     Indication: AUTOIMMUNE HEPATITIS
     Dosage: 5 MG, DAILY
  3. PROPOFOL. [Concomitant]
     Active Substance: PROPOFOL
     Dosage: SECOND DOSE OF 50 MG
     Route: 042
  4. EPINEPHRINE. [Suspect]
     Active Substance: EPINEPHRINE
     Dosage: 0.2?0.3 UG/KG/MIN
  5. LIDOCAINE. [Concomitant]
     Active Substance: LIDOCAINE
     Indication: INFILTRATION ANAESTHESIA
     Dosage: 15 ML
  6. EPINEPHRINE. [Suspect]
     Active Substance: EPINEPHRINE
     Indication: INFILTRATION ANAESTHESIA
     Dosage: 1:100 000
  7. THYROXINE [Concomitant]
     Active Substance: LEVOTHYROXINE
     Indication: HYPOTHYROIDISM
     Dosage: 100 UG, DAILY
  8. OXYGEN. [Concomitant]
     Active Substance: OXYGEN
     Dosage: HUDSON?TYPE FACEMASK (EVERY 1 MINUTE)
     Route: 055
  9. FENTANYL. [Concomitant]
     Active Substance: FENTANYL
     Dosage: 75 UG
     Route: 042
  10. EPINEPHRINE. [Suspect]
     Active Substance: EPINEPHRINE
     Indication: HYPOTENSION
     Dosage: FOUR ALIQUOTS OF EPINEPHRINE INTRAVENOUSLY 25?50 UG
     Route: 042
  11. EPINEPHRINE. [Suspect]
     Active Substance: EPINEPHRINE
     Dosage: INTERMITTENT BOLUSES OF EPINEPHRINE
     Route: 040
  12. DULOXETINE. [Suspect]
     Active Substance: DULOXETINE
     Indication: DEPRESSION
     Dosage: 60 MG, DAILY
  13. ATROPINE. [Concomitant]
     Active Substance: ATROPINE
     Dosage: 600 UG
     Route: 042
  14. ONDANSETRON [Concomitant]
     Active Substance: ONDANSETRON
     Dosage: 4 MG
     Route: 042
  15. AMOXICILLIN. [Concomitant]
     Active Substance: AMOXICILLIN
     Indication: PROPHYLAXIS
     Dosage: UNK
  16. LIDOCAINE. [Concomitant]
     Active Substance: LIDOCAINE
     Indication: INDUCTION OF ANAESTHESIA
     Dosage: 10 MG
     Route: 042
  17. PROPOFOL. [Concomitant]
     Active Substance: PROPOFOL
     Indication: SEDATION
     Dosage: 50 MG
     Route: 042

REACTIONS (4)
  - Cardiac arrest [Recovered/Resolved]
  - Stress cardiomyopathy [Recovered/Resolved]
  - Hypokalaemia [Recovered/Resolved]
  - Metabolic acidosis [Recovered/Resolved]
